FAERS Safety Report 6109608-9 (Version None)
Quarter: 2009Q1

REPORT INFORMATION
  Report Type: 
  Country: None (occurrence: None)
  Receive Date: 20090306
  Receipt Date: 20090225
  Transmission Date: 20090719
  Serious: Yes (Life-Threatening, Hospitalization)
  Sender: FDA-Public Use
  Company Number: B0562616A

PATIENT
  Age: 50 Year
  Sex: Female

DRUGS (14)
  1. LAMIVUDINE [Suspect]
     Indication: HIV INFECTION
     Dosage: 150 MG / TWICE PER DAY / ORAL
     Route: 048
  2. STAVUDINE [Suspect]
     Indication: HIV INFECTION
     Dosage: 40 MG / TWICE PER DAY / ORAL
     Route: 048
  3. NELFINAVIR MESYLATE [Concomitant]
  4. CO-TRIMOXAZOLE [Concomitant]
  5. FLUOXETINE [Concomitant]
  6. METOPROLOL TARTRATE [Concomitant]
  7. IBUPROFEN TABLETS [Concomitant]
  8. ENSURE [Concomitant]
  9. ASPIRIN [Concomitant]
  10. LANSOPRAZOLE [Concomitant]
  11. LISINOPRIL [Concomitant]
  12. LOSARTAN POTASSIUM [Concomitant]
  13. TRIAMTERENE AND HYDROCHLOROTHIAZIDE [Concomitant]
  14. METHADONE HYDROCHLORIDE [Concomitant]

REACTIONS (12)
  - COUGH [None]
  - DIZZINESS [None]
  - DRUG SCREEN POSITIVE [None]
  - DYSPNOEA [None]
  - HYPERTENSION [None]
  - HYPOTENSION [None]
  - LACTIC ACIDOSIS [None]
  - METABOLIC ACIDOSIS [None]
  - PNEUMONIA [None]
  - RENAL FAILURE ACUTE [None]
  - TACHYPNOEA [None]
  - TREATMENT NONCOMPLIANCE [None]
